FAERS Safety Report 9543969 (Version 1)
Quarter: 2013Q3

REPORT INFORMATION
  Report Type: Spontaneous
  Country: US (occurrence: US)
  Receive Date: 20130923
  Receipt Date: 20130923
  Transmission Date: 20140515
  Serious: No
  Sender: FDA-Public Use
  Company Number: US-ASTRAZENECA-2013SE64550

PATIENT
  Age: 79 Year
  Sex: Female
  Weight: 95.3 kg

DRUGS (8)
  1. SYMBICORT [Suspect]
     Indication: CHRONIC OBSTRUCTIVE PULMONARY DISEASE
     Dosage: 320 MCG BID
     Route: 055
     Dates: start: 2012, end: 20130819
  2. SYMBICORT [Suspect]
     Indication: CHRONIC OBSTRUCTIVE PULMONARY DISEASE
     Dosage: 320 MCG BID
     Route: 055
     Dates: start: 20130820
  3. LISINOPRIL [Suspect]
     Indication: HYPERTENSION
     Route: 048
  4. METOPROLOL SUCCINATE [Suspect]
     Indication: HYPERTENSION
     Route: 048
  5. COUMADIN [Concomitant]
  6. MECLAZINE [Concomitant]
     Dosage: PRN
  7. FUROSEMIDE [Concomitant]
     Indication: DIURETIC THERAPY
  8. COMBIVENT [Concomitant]

REACTIONS (3)
  - Dyspnoea exertional [Unknown]
  - Intentional drug misuse [Unknown]
  - Drug dose omission [Unknown]
